FAERS Safety Report 9006974 (Version 1)
Quarter: 2013Q1

REPORT INFORMATION
  Report Type: Report from Study
  Country: CA (occurrence: CA)
  Receive Date: 20130110
  Receipt Date: 20130110
  Transmission Date: 20140127
  Serious: Yes (Other)
  Sender: FDA-Public Use
  Company Number: CA-ABBOTT-13P-028-1031989-00

PATIENT
  Age: 53 None
  Sex: Female

DRUGS (1)
  1. HUMIRA [Suspect]
     Indication: RHEUMATOID ARTHRITIS
     Route: 058
     Dates: start: 20110831, end: 20121107

REACTIONS (3)
  - Bladder disorder [Unknown]
  - Intestinal resection [Unknown]
  - Thrombosis [Unknown]
